FAERS Safety Report 7441531-X (Version None)
Quarter: 2011Q2

REPORT INFORMATION
  Report Type: 
  Country: None (occurrence: None)
  Receive Date: 20110428
  Receipt Date: 20110419
  Transmission Date: 20111010
  Serious: Yes (Other)
  Sender: FDA-Public Use
  Company Number: AR-AMGEN-ARGSP2011016629

PATIENT
  Age: 39 Year
  Sex: Male
  Weight: 108 kg

DRUGS (8)
  1. ENBREL [Suspect]
     Indication: RHEUMATOID ARTHRITIS
     Dosage: 50 MG, WEEKLY
     Route: 058
     Dates: start: 20090501, end: 20100601
  2. BUDESONIDE [Concomitant]
     Dosage: UNK
  3. METFORMIN [Concomitant]
     Dosage: UNK
  4. CLONAZEPAM [Concomitant]
     Dosage: UNK
  5. CARBAMAZEPINE [Concomitant]
     Dosage: UNK
  6. HYDROXYCHLOROQUINE [Concomitant]
     Dosage: UNK
  7. ALBUTEROL SULFATE AUTOHALER [Concomitant]
     Dosage: UNK
  8. RISPERIDONE [Concomitant]
     Dosage: UNK

REACTIONS (2)
  - HAEMORRHAGIC CEREBRAL INFARCTION [None]
  - CEREBROVASCULAR ACCIDENT [None]
